FAERS Safety Report 10533583 (Version 1)
Quarter: 2014Q4

REPORT INFORMATION
  Report Type: Spontaneous
  Country: US (occurrence: None)
  Receive Date: 20141021
  Receipt Date: 20141021
  Transmission Date: 20150529
  Serious: Yes (Life-Threatening, Disabling, Other)
  Sender: FDA-Public Use
  Company Number: None

PATIENT
  Age: 31 Year
  Sex: Female
  Weight: 62.6 kg

DRUGS (1)
  1. GABAPENTIN 100 MG. CAPSULE [Suspect]
     Active Substance: GABAPENTIN
     Indication: SCIATIC NERVE INJURY
     Route: 048
     Dates: start: 20140922, end: 20141016

REACTIONS (23)
  - Nasal congestion [None]
  - Restlessness [None]
  - Stress [None]
  - Fatigue [None]
  - Anger [None]
  - Abnormal behaviour [None]
  - Vision blurred [None]
  - Activities of daily living impaired [None]
  - Aggression [None]
  - Weight decreased [None]
  - Mood altered [None]
  - Panic attack [None]
  - Dyspnoea [None]
  - Vomiting [None]
  - Tobacco user [None]
  - Hypersensitivity [None]
  - Rhinorrhoea [None]
  - Influenza like illness [None]
  - Quality of life decreased [None]
  - Depression [None]
  - Paraesthesia [None]
  - Laziness [None]
  - Tremor [None]

NARRATIVE: CASE EVENT DATE: 20141019
